FAERS Safety Report 7503308-6 (Version None)
Quarter: 2011Q2

REPORT INFORMATION
  Report Type: 
  Country: None (occurrence: None)
  Receive Date: 20110525
  Receipt Date: 20110519
  Transmission Date: 20111010
  Serious: Yes (Other)
  Sender: FDA-Public Use
  Company Number: B0721497A

PATIENT
  Age: 47 Year
  Sex: Female
  Weight: 75 kg

DRUGS (1)
  1. ALLI [Suspect]
     Route: 065
     Dates: start: 20101101, end: 20110401

REACTIONS (3)
  - HYPERTENSION [None]
  - CARDIAC FIBRILLATION [None]
  - OFF LABEL USE [None]
